FAERS Safety Report 16922738 (Version 1)
Quarter: 2019Q4

REPORT INFORMATION
  Report Type: Report from Study
  Country: JP (occurrence: JP)
  Receive Date: 20191016
  Receipt Date: 20191016
  Transmission Date: 20200122
  Serious: No
  Sender: FDA-Public Use
  Company Number: JP-BEH-2017086256

PATIENT
  Age: 74 Year
  Sex: Female
  Weight: 67 kg

DRUGS (28)
  1. BERIPLEX P/N [Suspect]
     Active Substance: COAGULATION FACTOR IX HUMAN\COAGULATION FACTOR VII HUMAN\COAGULATION FACTOR X HUMAN\PROTEIN C\PROTEIN S HUMAN\PROTHROMBIN
     Indication: THERAPEUTIC PROCEDURE
     Dosage: 1500 IU, SINGLE
     Route: 042
     Dates: start: 20171221, end: 20171221
  2. WARFARIN                           /00014803/ [Concomitant]
     Active Substance: WARFARIN
     Indication: ATRIAL FIBRILLATION
     Dosage: 2.5 MG, QD
     Route: 048
     Dates: end: 20171221
  3. SELARA [Concomitant]
     Active Substance: EPLERENONE
     Dosage: UNK
     Route: 048
     Dates: end: 20171221
  4. STAYBLA [Concomitant]
     Active Substance: IMIDAFENACIN
     Dosage: UNK
     Route: 048
     Dates: end: 20171221
  5. VALSARTAN. [Concomitant]
     Active Substance: VALSARTAN
     Dosage: UNK
     Route: 048
     Dates: end: 20171221
  6. CARVEDILOL. [Concomitant]
     Active Substance: CARVEDILOL
     Dosage: UNK
     Route: 048
     Dates: start: 20171223
  7. BERIPLEX P/N [Suspect]
     Active Substance: COAGULATION FACTOR IX HUMAN\COAGULATION FACTOR VII HUMAN\COAGULATION FACTOR X HUMAN\PROTEIN C\PROTEIN S HUMAN\PROTHROMBIN
     Indication: THERAPEUTIC PROCEDURE
     Dosage: 1500 IU, SINGLE
     Route: 042
     Dates: start: 20171221, end: 20171221
  8. ELIQUIS [Concomitant]
     Active Substance: APIXABAN
     Indication: PROPHYLAXIS
  9. BAYASPIRIN [Concomitant]
     Active Substance: ASPIRIN
     Indication: PROPHYLAXIS
     Dosage: UNK
     Route: 048
     Dates: end: 20171221
  10. E KEPPRA [Concomitant]
     Active Substance: LEVETIRACETAM
     Indication: SEIZURE
     Dosage: UNK
     Route: 065
     Dates: start: 20171221, end: 20171222
  11. WARFARIN                           /00014803/ [Concomitant]
     Active Substance: WARFARIN
     Indication: PROPHYLAXIS
  12. BAYASPIRIN [Concomitant]
     Active Substance: ASPIRIN
     Dosage: UNK
     Route: 048
     Dates: start: 20171223
  13. ELIQUIS [Concomitant]
     Active Substance: APIXABAN
     Indication: ATRIAL FIBRILLATION
     Dosage: 10 MG, TOT
     Route: 048
     Dates: start: 20171223, end: 20171223
  14. FUROSEMIDE. [Concomitant]
     Active Substance: FUROSEMIDE
     Dosage: UNK
     Route: 048
     Dates: start: 20171223
  15. CARVEDILOL. [Concomitant]
     Active Substance: CARVEDILOL
     Dosage: UNK
     Route: 048
     Dates: end: 20171220
  16. BENET [Concomitant]
     Active Substance: RISEDRONATE SODIUM
     Dosage: UNK
     Route: 048
     Dates: end: 20171221
  17. EDARAVONE [Concomitant]
     Active Substance: EDARAVONE
     Indication: CEREBRAL ARTERY EMBOLISM
     Dosage: UNK
     Route: 065
     Dates: start: 20171221, end: 20171225
  18. VONOPRAZAN [Concomitant]
     Active Substance: VONOPRAZAN
     Indication: PROPHYLAXIS AGAINST GASTROINTESTINAL ULCER
     Dosage: UNK
     Route: 048
     Dates: start: 20171222
  19. VALSARTAN. [Concomitant]
     Active Substance: VALSARTAN
     Dosage: UNK
     Route: 048
     Dates: start: 20171223, end: 20180109
  20. OMEPRAZOLE. [Concomitant]
     Active Substance: OMEPRAZOLE
     Indication: PROPHYLAXIS AGAINST GASTROINTESTINAL ULCER
     Dosage: UNK
     Route: 048
     Dates: end: 20171220
  21. FOSTOIN [Concomitant]
     Active Substance: FOSPHENYTOIN SODIUM
     Indication: SEIZURE
     Dosage: UNK
     Route: 065
     Dates: start: 20171221, end: 20171221
  22. GRTPA [Concomitant]
     Active Substance: ALTEPLASE
     Indication: CEREBRAL ARTERY EMBOLISM
     Dosage: UNK
     Route: 065
     Dates: start: 20171221, end: 20171225
  23. NIFEDIPINE. [Concomitant]
     Active Substance: NIFEDIPINE
     Dosage: UNK
     Route: 048
     Dates: end: 20171221
  24. NIFEDIPINE. [Concomitant]
     Active Substance: NIFEDIPINE
     Dosage: UNK
     Route: 048
     Dates: start: 20171223, end: 20180111
  25. MONTELUKAST [Concomitant]
     Active Substance: MONTELUKAST SODIUM
     Dosage: UNK
     Route: 048
     Dates: end: 20171220
  26. SELARA [Concomitant]
     Active Substance: EPLERENONE
     Dosage: UNK
     Route: 048
     Dates: start: 20171223
  27. FUROSEMIDE. [Concomitant]
     Active Substance: FUROSEMIDE
     Dosage: UNK
     Route: 048
     Dates: end: 20171221
  28. CRESTOR [Concomitant]
     Active Substance: ROSUVASTATIN CALCIUM
     Dosage: UNK
     Route: 048
     Dates: start: 20171224

REACTIONS (1)
  - C-reactive protein increased [Recovered/Resolved]

NARRATIVE: CASE EVENT DATE: 20171225
